FAERS Safety Report 6425423-0 (Version None)
Quarter: 2009Q4

REPORT INFORMATION
  Report Type: 
  Country: None (occurrence: None)
  Receive Date: 20091103
  Receipt Date: 20091023
  Transmission Date: 20100525
  Serious: Yes (Other)
  Sender: FDA-Public Use
  Company Number: US-BAYER-200915937BCC

PATIENT
  Age: 24 Year
  Sex: Male
  Weight: 75 kg

DRUGS (13)
  1. NEO-SYNEPHRINE REGULAR STRENGTH SPRAY [Suspect]
     Indication: NASAL CONGESTION
     Route: 048
     Dates: start: 19690101
  2. NEO-SYNEPHRINE 12 HR SPRAY [Suspect]
     Indication: NASAL CONGESTION
     Route: 061
  3. NEO-SYNEPHRINE NIGHTTIME SPRAY [Suspect]
     Indication: NASAL CONGESTION
     Route: 061
  4. BYSTOLIC [Concomitant]
     Route: 065
  5. SYMAX-SR [Concomitant]
     Route: 065
  6. ASPIRIN [Concomitant]
     Route: 065
  7. MEN OVER 40 MULTI-VITAMIN [Concomitant]
     Route: 065
  8. PUMPKIN SEED OIL [Concomitant]
     Route: 065
  9. LECITHIN [Concomitant]
     Route: 065
  10. TABA [Concomitant]
     Route: 065
  11. FOLIC ACID [Concomitant]
     Route: 065
  12. BIOTIN [Concomitant]
     Route: 065
  13. SAW PALMETTO BERRIES [Concomitant]
     Route: 065

REACTIONS (4)
  - DRUG DEPENDENCE [None]
  - DYSPNOEA [None]
  - NASAL CONGESTION [None]
  - PANIC REACTION [None]
